FAERS Safety Report 19872935 (Version 1)
Quarter: 2021Q3

REPORT INFORMATION
  Report Type: Report from Study
  Country: US (occurrence: US)
  Receive Date: 20210923
  Receipt Date: 20210923
  Transmission Date: 20211014
  Serious: Yes (Hospitalization)
  Sender: FDA-Public Use
  Company Number: US-MYLANLABS-2021M1064542

PATIENT
  Age: 5 Year

DRUGS (12)
  1. CISPLATIN. [Suspect]
     Active Substance: CISPLATIN
     Indication: NEUROBLASTOMA
     Dosage: 50 MILLIGRAM/SQ. METER, CYCLE, CISPLATIN 50 MG/M2/DAY OVER 1 HOUR (DAYS 1?4) OF CYCLE 3 AND 5
     Route: 042
  2. MELPHALAN. [Suspect]
     Active Substance: MELPHALAN
     Indication: BONE MARROW CONDITIONING REGIMEN
     Dosage: UNK
     Route: 065
  3. TOPOTECAN [Suspect]
     Active Substance: TOPOTECAN HYDROCHLORIDE
     Indication: NEUROBLASTOMA
     Dosage: 1.2 MILLIGRAM/SQ. METER, CYCLE, ON DAYS 1?5 OF CYCLE 1 AND 2
     Route: 042
  4. DINUTUXIMAB [Suspect]
     Active Substance: DINUTUXIMAB
     Indication: NEUROBLASTOMA
     Dosage: 17.5 MILLIGRAM/SQ. METER, CYCLE, ON DAYS 2?5 OF EACH CYCLES, FOR 6 CYCLES
     Route: 042
  5. MESNA. [Suspect]
     Active Substance: MESNA
     Indication: NEUROBLASTOMA
     Dosage: 525 MILLIGRAM/SQ. METER, CYCLE, ADMINISTERED IMMEDIATELY PRIO??.
     Route: 042
  6. VINCRISTINE [Suspect]
     Active Substance: VINCRISTINE
     Indication: NEUROBLASTOMA
     Dosage: 0.67 MILLIGRAM/SQ. METER, CYCLE, VINCRISTINE 0.67 MG/M2/DOSE ON DAYS 1?3 OF CYCLE 4 AND 6
     Route: 065
  7. ETOPOSIDE. [Suspect]
     Active Substance: ETOPOSIDE
     Indication: NEUROBLASTOMA
     Dosage: 200 MILLIGRAM/SQ. METER, CYCLE, ETOPOSIDE 200 MG/M2/DAY OVER 1 HOUR (DAYS 1?3) OF CYCLE 3 AND 5
     Route: 042
  8. BUSULFAN. [Suspect]
     Active Substance: BUSULFAN
     Indication: BONE MARROW CONDITIONING REGIMEN
     Dosage: UNK
     Route: 065
  9. DOXORUBICIN [Suspect]
     Active Substance: DOXORUBICIN
     Indication: NEUROBLASTOMA
     Dosage: 25 MILLIGRAM/SQ. METER, CYCLE, ON DAYS 1 ? 3 OF CYCLE 4 AND 6
     Route: 042
  10. ISOTRETINOIN. [Suspect]
     Active Substance: ISOTRETINOIN
     Indication: NEUROBLASTOMA
     Dosage: UNK
     Route: 065
  11. CYCLOPHOSPHAMIDE. [Suspect]
     Active Substance: CYCLOPHOSPHAMIDE
     Indication: NEUROBLASTOMA
     Dosage: 400 MILLIGRAM/SQ. METER, CYCLE, ON DAYS 1?5 OF CYCLE 1 AND 2
     Route: 042
  12. INTERLEUKIN?2 [Suspect]
     Active Substance: ALDESLEUKIN
     Indication: NEUROBLASTOMA
     Dosage: BEGAN THE DAY FOLLOWING THE LAST DOSE OF CHEMOTHERAPY AT A DOSE OF??..
     Route: 058

REACTIONS (3)
  - Pancytopenia [Unknown]
  - Pain [Unknown]
  - Off label use [Unknown]
